FAERS Safety Report 9904726 (Version 2)
Quarter: 2014Q1

REPORT INFORMATION
  Report Type: Spontaneous
  Country: US (occurrence: US)
  Receive Date: 20140218
  Receipt Date: 20140305
  Transmission Date: 20141002
  Serious: No
  Sender: FDA-Public Use
  Company Number: US-B.I. PHARMACEUTICALS,INC./RIDGEFIELD-2014-BI-06816BP

PATIENT
  Age: 62 Year
  Sex: Female

DRUGS (1)
  1. SPIRIVA [Suspect]
     Indication: TUBERCULOSIS
     Dosage: 18 MCG
     Route: 055

REACTIONS (3)
  - Drug administration error [Unknown]
  - Off label use [Unknown]
  - Product quality issue [Unknown]
